FAERS Safety Report 16985035 (Version 1)
Quarter: 2019Q4

REPORT INFORMATION
  Report Type: Spontaneous
  Country: FR (occurrence: FR)
  Receive Date: 20191101
  Receipt Date: 20191101
  Transmission Date: 20200122
  Serious: Yes (Hospitalization)
  Sender: FDA-Public Use
  Company Number: FR-PFIZER INC-2019319087

PATIENT
  Age: 63 Year
  Sex: Male
  Weight: 95.1 kg

DRUGS (4)
  1. DIFFU K [Concomitant]
     Active Substance: POTASSIUM CHLORIDE
     Dosage: UNK
  2. XALKORI [Suspect]
     Active Substance: CRIZOTINIB
     Indication: LUNG ADENOCARCINOMA
     Dosage: 500 MG, DAILY
     Route: 048
     Dates: start: 20190618, end: 20190818
  3. METFORMIN [Concomitant]
     Active Substance: METFORMIN HYDROCHLORIDE
     Dosage: UNK
  4. VOGALENE [Concomitant]
     Active Substance: METOPIMAZINE
     Dosage: UNK

REACTIONS (16)
  - Oedema peripheral [Recovering/Resolving]
  - Fatigue [Not Recovered/Not Resolved]
  - Generalised oedema [Recovering/Resolving]
  - Dysgeusia [Not Recovered/Not Resolved]
  - Pleural effusion [Recovering/Resolving]
  - Vomiting [Not Recovered/Not Resolved]
  - Nausea [Not Recovered/Not Resolved]
  - Rash [Recovered/Resolved]
  - Cough [Not Recovered/Not Resolved]
  - Visual brightness [Recovered/Resolved]
  - Decreased appetite [Not Recovered/Not Resolved]
  - Pericardial effusion [Recovering/Resolving]
  - Dyspnoea [Not Recovered/Not Resolved]
  - Vision blurred [Not Recovered/Not Resolved]
  - Constipation [Not Recovered/Not Resolved]
  - Gastrooesophageal reflux disease [Recovered/Resolved]

NARRATIVE: CASE EVENT DATE: 20190626
